FAERS Safety Report 6122119-X (Version None)
Quarter: 2009Q1

REPORT INFORMATION
  Report Type: 
  Country: None (occurrence: None)
  Receive Date: 20090313
  Receipt Date: 20090313
  Transmission Date: 20090719
  Serious: Yes (Hospitalization)
  Sender: FDA-Public Use
  Company Number: None

PATIENT
  Age: 42 Year
  Sex: Female
  Weight: 63 kg

DRUGS (4)
  1. DACARBAZINE (DACARBAZINE)UNKNOWN [Suspect]
     Indication: MALIGNANT MELANOMA
     Dosage: DAILY, EVERY 22 DAYS, INTRAVENOUS
     Route: 042
     Dates: start: 20070323, end: 20070413
  2. BISOPROLOL [Concomitant]
  3. ALLOPURINOL [Concomitant]
  4. IMOVANE [Concomitant]

REACTIONS (2)
  - PNEUMONIA [None]
  - PULMONARY EMBOLISM [None]
